FAERS Safety Report 5076173-7 (Version None)
Quarter: 2006Q3

REPORT INFORMATION
  Report Type: 
  Country: None (occurrence: None)
  Receive Date: 20060807
  Receipt Date: 20060727
  Transmission Date: 20061208
  Serious: Yes (Hospitalization)
  Sender: FDA-Public Use
  Company Number: HQWYE951405JUN06

PATIENT
  Age: 54 Year
  Sex: Male
  Weight: 90 kg

DRUGS (26)
  1. NEORAL [Suspect]
     Indication: PROPHYLAXIS AGAINST TRANSPLANT REJECTION
     Dosage: SEE IMAGE
     Route: 048
     Dates: start: 20060503, end: 20060530
  2. NEORAL [Suspect]
     Indication: PROPHYLAXIS AGAINST TRANSPLANT REJECTION
     Dosage: SEE IMAGE
     Route: 048
     Dates: start: 20060531, end: 20060531
  3. NEORAL [Suspect]
     Indication: PROPHYLAXIS AGAINST TRANSPLANT REJECTION
     Dosage: SEE IMAGE
     Route: 048
     Dates: start: 20060601
  4. ARANESP [Concomitant]
  5. NEURONTIN [Concomitant]
  6. LEVAQUIN [Concomitant]
  7. COLACE (DOCUSATE SODIUM) [Concomitant]
  8. OS-CAL (CALCIUM/ERGOCALCIFEROL) [Concomitant]
  9. MYCELEX [Concomitant]
  10. SODIUM POLYSTYRENE SULFONATE (SODIUM POLYSTYRENE SULFONATE) [Concomitant]
  11. NOVOLIN R [Concomitant]
  12. VANCOMYCIN [Concomitant]
  13. CELLCEPT [Concomitant]
  14. ASPIRIN [Concomitant]
  15. PREDNISONE TAB [Concomitant]
  16. BACTRIM [Concomitant]
  17. GLIPIZIDE [Concomitant]
  18. TOPROL-XL [Concomitant]
  19. NORVASC [Concomitant]
  20. LIPITOR [Concomitant]
  21. CLONIDINE [Concomitant]
  22. PROTONIX [Concomitant]
  23. VALCYTE [Concomitant]
  24. NORCO [Concomitant]
  25. PIPERACILLIN SODIUM W TAZOBACTAM SODIUM (PIPERACILLIN SODIUM/TAZOBACTA [Concomitant]
  26. NEORAL [Suspect]

REACTIONS (5)
  - CATHETER RELATED INFECTION [None]
  - SEROMA [None]
  - STAPHYLOCOCCAL INFECTION [None]
  - WOUND DEHISCENCE [None]
  - WOUND SECRETION [None]
